FAERS Safety Report 9369494 (Version 2)
Quarter: 2013Q3

REPORT INFORMATION
  Report Type: Spontaneous
  Country: US (occurrence: US)
  Receive Date: 20130626
  Receipt Date: 20130712
  Transmission Date: 20140515
  Serious: Yes (Other)
  Sender: FDA-Public Use
  Company Number: US-PFIZER INC-2013189809

PATIENT
  Age: 49 Year
  Sex: Female

DRUGS (3)
  1. CHANTIX [Suspect]
     Indication: SMOKING CESSATION THERAPY
     Dosage: 0.5 MG, DAILY
     Route: 048
  2. CHANTIX [Suspect]
     Dosage: UNK
  3. METFORMIN HCL [Suspect]
     Indication: DIABETES MELLITUS
     Dosage: UNK

REACTIONS (6)
  - Suicidal ideation [Unknown]
  - Blindness [Unknown]
  - Blood cholesterol increased [Unknown]
  - Blood glucose increased [Unknown]
  - Stress [Recovered/Resolved]
  - Drug ineffective [Unknown]
